FAERS Safety Report 4950223-8 (Version None)
Quarter: 2006Q1

REPORT INFORMATION
  Report Type: 
  Country: None (occurrence: None)
  Receive Date: 20060322
  Receipt Date: 20060317
  Transmission Date: 20060701
  Serious: Yes (Life-Threatening, Hospitalization)
  Sender: FDA-Public Use
  Company Number: FR-JNJFOC-20060304119

PATIENT
  Age: 72 Year
  Sex: Male

DRUGS (6)
  1. ACETAMINOPHEN [Suspect]
  2. ACETAMINOPHEN [Suspect]
     Dosage: 10 DAYS PRIOR TO HOSPITALIZATION
  3. FLUINDIONE [Interacting]
     Indication: ANTICOAGULANT THERAPY
  4. GLIMEPIRIDE [Concomitant]
  5. RAMIPRIL [Concomitant]
  6. DIGOXIN [Concomitant]

REACTIONS (2)
  - DRUG INTERACTION [None]
  - HYPOCOAGULABLE STATE [None]
